FAERS Safety Report 11340054 (Version 1)
Quarter: 2015Q3

REPORT INFORMATION
  Report Type: Spontaneous
  Country: CA (occurrence: CA)
  Receive Date: 20150805
  Receipt Date: 20150805
  Transmission Date: 20151125
  Serious: Yes (Life-Threatening, Hospitalization)
  Sender: FDA-Public Use
  Company Number: CA-TEVA-583468ACC

PATIENT
  Age: 39 Year
  Sex: Female

DRUGS (3)
  1. ZOLADEX INJ DEPOT 3.6MG [Concomitant]
     Route: 065
  2. TAMOXIFEN [Suspect]
     Active Substance: TAMOXIFEN
     Indication: BREAST CANCER
     Dosage: 20 MILLIGRAM DAILY;
     Route: 048
  3. ACLASTA [Concomitant]
     Active Substance: ZOLEDRONIC ACID
     Route: 065

REACTIONS (3)
  - Pseudocyst [Unknown]
  - Hyperlipidaemia [Unknown]
  - Pancreatitis [Unknown]
